FAERS Safety Report 14861544 (Version 1)
Quarter: 2018Q2

REPORT INFORMATION
  Report Type: Spontaneous
  Country: US (occurrence: US)
  Receive Date: 20180423
  Receipt Date: 20180423
  Transmission Date: 20180711
  Serious: Yes (Other)
  Sender: FDA-Public Use
  Company Number: None

PATIENT
  Age: 50 Year
  Sex: Female

DRUGS (1)
  1. TRAZODONE [Suspect]
     Active Substance: TRAZODONE HYDROCHLORIDE
     Indication: AGGRESSION
     Dates: start: 19980101, end: 20180101

REACTIONS (4)
  - Nightmare [None]
  - Hyperhidrosis [None]
  - Drug abuse [None]
  - Heart rate increased [None]

NARRATIVE: CASE EVENT DATE: 19980101
